FAERS Safety Report 11216667 (Version 1)
Quarter: 2015Q2

REPORT INFORMATION
  Report Type: Other
  Country: GB (occurrence: GB)
  Receive Date: 20150624
  Receipt Date: 20150624
  Transmission Date: 20150821
  Serious: Yes (Other)
  Sender: FDA-Public Use
  Company Number: GB-MYLANLABS-2015M1019701

PATIENT

DRUGS (3)
  1. CHLORAMPHENICOL [Concomitant]
     Active Substance: CHLORAMPHENICOL
     Dosage: 1 GTT, QID
     Dates: start: 20150601
  2. GAVISCON [Concomitant]
     Active Substance: ALUMINUM HYDROXIDE\MAGNESIUM CARBONATE
     Dosage: 5ML - 10ML 4 TIMES/DAY
     Dates: start: 20150601
  3. LANSOPRAZOLE. [Suspect]
     Active Substance: LANSOPRAZOLE
     Dosage: UNK
     Dates: start: 20150601

REACTIONS (3)
  - Swelling face [Recovered/Resolved]
  - Swollen tongue [Unknown]
  - Eye swelling [Unknown]

NARRATIVE: CASE EVENT DATE: 20150601
